FAERS Safety Report 15121282 (Version 1)
Quarter: 2018Q3

REPORT INFORMATION
  Report Type: Spontaneous
  Country: US (occurrence: US)
  Receive Date: 20180709
  Receipt Date: 20180709
  Transmission Date: 20181010
  Serious: Yes (Death)
  Sender: FDA-Public Use
  Company Number: US-SENTYNL THERAPEUTICS, INC.  -2051570

PATIENT
  Age: 67 Year
  Sex: Female

DRUGS (1)
  1. ABSTRAL [Suspect]
     Active Substance: FENTANYL CITRATE
     Indication: CANCER PAIN
     Route: 060
     Dates: start: 20140614, end: 20160822

REACTIONS (1)
  - Death [Fatal]

NARRATIVE: CASE EVENT DATE: 20160822
